FAERS Safety Report 6183337-8 (Version None)
Quarter: 2009Q2

REPORT INFORMATION
  Report Type: 
  Country: None (occurrence: None)
  Receive Date: 20090507
  Receipt Date: 20090423
  Transmission Date: 20091009
  Serious: Yes (Other)
  Sender: FDA-Public Use
  Company Number: JP-TYCO HEALTHCARE/MALLINCKRODT-T200900926

PATIENT
  Sex: Female

DRUGS (3)
  1. OPTIRAY 300 [Suspect]
     Indication: ARTERIOGRAM CORONARY
     Dosage: UNK, SINGLE
     Route: 013
     Dates: start: 20081201, end: 20081201
  2. SODIUM CHLORIDE [Concomitant]
     Indication: PREMEDICATION
     Dosage: 3ML/KG
     Dates: start: 20081201, end: 20081201
  3. SODIUM CHLORIDE [Concomitant]
     Dosage: 1 ML/KG/HR
     Dates: start: 20081201, end: 20081201

REACTIONS (1)
  - NEPHROPATHY TOXIC [None]
